FAERS Safety Report 9624231 (Version 1)
Quarter: 2013Q4

REPORT INFORMATION
  Report Type: Spontaneous
  Country: FR (occurrence: FR)
  Receive Date: 20131015
  Receipt Date: 20131015
  Transmission Date: 20140711
  Serious: Yes (Hospitalization, Other)
  Sender: FDA-Public Use
  Company Number: FR-ASTRAZENECA-2013SE74840

PATIENT
  Age: 20 Year
  Sex: Female

DRUGS (7)
  1. ZOMIGORO [Suspect]
     Indication: ANXIETY
     Dosage: 2.5 MG, UP TO FOUR PER DAY
     Route: 060
     Dates: end: 201301
  2. ZOMIGORO [Suspect]
     Indication: TENSION
     Dosage: 2.5 MG, UP TO FOUR PER DAY
     Route: 060
     Dates: end: 201301
  3. CODEINE (PHOSPHATE DE) [Suspect]
     Dosage: UP TO SIX PER DAY
     Route: 048
     Dates: end: 201301
  4. CLARADOL [Suspect]
     Dosage: UP TO SIX PER DAY
     Route: 048
     Dates: end: 201301
  5. CLARADOL [Suspect]
     Dosage: NAME: PARACETAMOL; 1 G, UP TO FOUR PER DAY
     Route: 048
     Dates: end: 201301
  6. DICLOFENAC [Suspect]
     Dosage: UP TO SIX PER DAY
     Route: 048
     Dates: end: 201301
  7. MYOLASTAN [Suspect]
     Dosage: UP TO SIX PER DAY

REACTIONS (5)
  - Drug abuse [Recovered/Resolved]
  - Medication overuse headache [Recovered/Resolved]
  - Drug dependence [Unknown]
  - Nausea [Unknown]
  - Vomiting [Unknown]
